FAERS Safety Report 23041016 (Version 2)
Quarter: 2023Q4

REPORT INFORMATION
  Report Type: Spontaneous
  Country: MA (occurrence: None)
  Receive Date: 20231006
  Receipt Date: 20231214
  Transmission Date: 20240110
  Serious: Yes (Hospitalization, Other)
  Sender: FDA-Public Use
  Company Number: MA-ROCHE-3434550

PATIENT
  Sex: Male

DRUGS (1)
  1. AVASTIN [Suspect]
     Active Substance: BEVACIZUMAB
     Indication: Age-related macular degeneration
     Route: 065
     Dates: start: 20230919

REACTIONS (6)
  - Blindness [Recovering/Resolving]
  - Off label use [Unknown]
  - Blindness [Not Recovered/Not Resolved]
  - Ocular hyperaemia [Unknown]
  - Eye pain [Recovered/Resolved]
  - Eye infection [Recovering/Resolving]
